FAERS Safety Report 20956817 (Version 2)
Quarter: 2022Q3

REPORT INFORMATION
  Report Type: Spontaneous
  Country: US (occurrence: US)
  Receive Date: 20220614
  Receipt Date: 20220708
  Transmission Date: 20221027
  Serious: No
  Sender: FDA-Public Use
  Company Number: US-BRISTOL-MYERS SQUIBB COMPANY-2022-056429

PATIENT
  Age: 83 Year
  Sex: Female
  Weight: 88 kg

DRUGS (3)
  1. POMALYST [Suspect]
     Active Substance: POMALIDOMIDE
     Indication: Kaposi^s sarcoma
     Dosage: FREQ - 3W,1W OFF
     Route: 048
  2. POMALYST [Suspect]
     Active Substance: POMALIDOMIDE
     Indication: Kaposi^s sarcoma
     Dosage: FREQ - 3 W,1W OFF
     Route: 048
  3. POMALYST [Suspect]
     Active Substance: POMALIDOMIDE
     Dosage: FREQ - 21 D OF 28 DAY CYCLE.
     Route: 048

REACTIONS (5)
  - Feeling abnormal [Unknown]
  - Constipation [Unknown]
  - Stomatitis [Unknown]
  - Gout [Unknown]
  - Oral disorder [Unknown]
